FAERS Safety Report 18427635 (Version 1)
Quarter: 2020Q4

REPORT INFORMATION
  Report Type: Spontaneous
  Country: US (occurrence: US)
  Receive Date: 20201026
  Receipt Date: 20201026
  Transmission Date: 20210114
  Serious: Yes (Hospitalization)
  Sender: FDA-Public Use
  Company Number: US-TEVA-2020-US-1842142

PATIENT
  Age: 47 Year
  Sex: Female

DRUGS (4)
  1. ASPIRIN. [Suspect]
     Active Substance: ASPIRIN
     Indication: PRODUCT USED FOR UNKNOWN INDICATION
     Route: 065
  2. PREDNISONE. [Concomitant]
     Active Substance: PREDNISONE
     Indication: ASPIRIN-EXACERBATED RESPIRATORY DISEASE
     Route: 065
  3. RESLIZUMAB [Suspect]
     Active Substance: RESLIZUMAB
     Indication: ASPIRIN-EXACERBATED RESPIRATORY DISEASE
     Route: 042
     Dates: start: 201701
  4. SALINE [Concomitant]
     Active Substance: SODIUM CHLORIDE
     Indication: ASPIRIN-EXACERBATED RESPIRATORY DISEASE
     Dosage: LARGE-VOLUME SALINE RINSES,
     Route: 065

REACTIONS (2)
  - Drug ineffective [Unknown]
  - Aspirin-exacerbated respiratory disease [Recovering/Resolving]
